FAERS Safety Report 8824692 (Version 1)
Quarter: 2012Q4

REPORT INFORMATION
  Report Type: 
  Country: FR (occurrence: FR)
  Receive Date: 20121004
  Receipt Date: 20121004
  Transmission Date: 20130627
  Serious: Yes (Disabling, Other)
  Sender: FDA-Public Use
  Company Number: FR-ASTRAZENECA-2012SE74605

PATIENT
  Age: 53 Year
  Sex: Male

DRUGS (5)
  1. SYMBICORT [Suspect]
     Indication: CHRONIC OBSTRUCTIVE PULMONARY DISEASE
     Dosage: 320/9 UG PER DOSE ON UNKNOWN FREQUENCY
     Route: 055
  2. CORTANCYL [Suspect]
     Route: 048
     Dates: start: 201002
  3. CELLCEPT [Concomitant]
  4. PROGRAF [Concomitant]
  5. CERTICAN [Concomitant]

REACTIONS (7)
  - Cataract [Not Recovered/Not Resolved]
  - Emphysema [Unknown]
  - Cardiac failure [Unknown]
  - Pulmonary tuberculosis [Unknown]
  - Renal failure chronic [Unknown]
  - Scotoma [Unknown]
  - Hypertension [Unknown]
